FAERS Safety Report 6028005-8 (Version None)
Quarter: 2008Q4

REPORT INFORMATION
  Report Type: 
  Country: None (occurrence: None)
  Receive Date: 20081223
  Receipt Date: 20081209
  Transmission Date: 20090506
  Serious: Yes (Other)
  Sender: FDA-Public Use
  Company Number: CHPA2008GB22351

PATIENT
  Age: 67 Year
  Sex: Male

DRUGS (8)
  1. NICOTINE [Suspect]
     Indication: SMOKING CESSATION THERAPY
     Dosage: 4 MG, BUCCAL; 30 DAILY, BUCCAL
     Route: 002
     Dates: start: 20060301
  2. NICOTINE [Suspect]
     Indication: SMOKING CESSATION THERAPY
     Dosage: TRANSDERMAL
     Route: 062
     Dates: start: 20060301
  3. MULTI-VITAMINS [Concomitant]
  4. CHOLESTEROL (CHOLESTEROL) [Concomitant]
  5. CARDIAC THERAPY [Concomitant]
  6. DRUG THERAPY NOS [Concomitant]
  7. ATENOLOL [Concomitant]
  8. ASPIRIN [Concomitant]

REACTIONS (3)
  - DRUG DEPENDENCE [None]
  - INTENTIONAL DRUG MISUSE [None]
  - TREATMENT NONCOMPLIANCE [None]
